FAERS Safety Report 10037104 (Version 1)
Quarter: 2014Q1

REPORT INFORMATION
  Report Type: Spontaneous
  Country: US (occurrence: None)
  Receive Date: 20140325
  Receipt Date: 20140325
  Transmission Date: 20141002
  Serious: Yes (Other)
  Sender: FDA-Public Use
  Company Number: None

PATIENT
  Age: 79 Year
  Sex: Female
  Weight: 65.77 kg

DRUGS (7)
  1. CLINDAMYCIN HCL [Suspect]
     Indication: RASH
     Dosage: 300MG?40 PILLS?1 CAPSULE EVERY 6 HOURS?BY MOUTH
     Route: 048
     Dates: start: 20130617, end: 20130630
  2. LOSARTEN [Concomitant]
  3. GABAPENTIN [Concomitant]
  4. OXYCONTIN [Concomitant]
  5. METANX (VIT B) [Concomitant]
  6. VITAMIN D3 [Concomitant]
  7. VIT C [Concomitant]

REACTIONS (5)
  - Malaise [None]
  - Clostridium difficile infection [None]
  - Urinary tract infection [None]
  - Diarrhoea [None]
  - Anxiety [None]
